FAERS Safety Report 6521636-8 (Version None)
Quarter: 2009Q4

REPORT INFORMATION
  Report Type: 
  Country: None (occurrence: None)
  Receive Date: 20091230
  Receipt Date: 20091217
  Transmission Date: 20100525
  Serious: Yes (Hospitalization, Other)
  Sender: FDA-Public Use
  Company Number: PHEH2008US03376

PATIENT
  Sex: Female

DRUGS (32)
  1. ZELNORM [Suspect]
     Indication: CONSTIPATION
     Dosage: 6 MG, BID
     Dates: end: 20070401
  2. ZELNORM [Suspect]
     Dosage: UNK
     Dates: start: 20070401
  3. ULTRACET [Concomitant]
  4. HYDROCODONE [Concomitant]
  5. LYRICA [Concomitant]
  6. CYMBALTA [Concomitant]
  7. WELLBUTRIN [Concomitant]
  8. ASPIRIN [Concomitant]
  9. DYNACIRC [Concomitant]
  10. NEXIUM [Concomitant]
  11. CLONIDINE [Concomitant]
  12. CALCIUM [Concomitant]
  13. MULTI-VITAMINS [Concomitant]
  14. ESTRATEST [Concomitant]
  15. VITAMIN E [Concomitant]
  16. MOBIC [Concomitant]
  17. VYTORIN [Concomitant]
  18. BEXTRA [Concomitant]
  19. MIACALCIN [Concomitant]
  20. OXCARBAZEPINE [Concomitant]
  21. ELAVIL [Concomitant]
  22. PLAVIX [Concomitant]
  23. COREG [Concomitant]
  24. CEREFOLIN [Concomitant]
  25. NORVASC [Concomitant]
  26. LIPITOR [Concomitant]
  27. LOVAZA [Concomitant]
  28. BONIVA [Concomitant]
  29. FLEXERIL [Concomitant]
  30. FUROSEMIDE [Concomitant]
  31. AMARYL [Concomitant]
  32. TOPAMAX [Concomitant]

REACTIONS (38)
  - ABDOMINAL DISTENSION [None]
  - ANAEMIA [None]
  - ANGIOPLASTY [None]
  - ANKLE FRACTURE [None]
  - ANTINUCLEAR ANTIBODY POSITIVE [None]
  - AORTIC VALVE INCOMPETENCE [None]
  - AORTIC VALVE SCLEROSIS [None]
  - ARTHRALGIA [None]
  - CAROTID ARTERY STENOSIS [None]
  - CAROTID BRUIT [None]
  - CEREBROVASCULAR ACCIDENT [None]
  - CHOLECYSTECTOMY [None]
  - CHOLECYSTITIS [None]
  - CHOLELITHIASIS [None]
  - CONSTIPATION [None]
  - FIBROMYALGIA [None]
  - GASTROOESOPHAGEAL REFLUX DISEASE [None]
  - HEADACHE [None]
  - HEPATIC ENZYME INCREASED [None]
  - HEPATIC STEATOSIS [None]
  - HIATUS HERNIA [None]
  - HYPERCALCAEMIA [None]
  - HYPERGLYCAEMIA [None]
  - INJURY [None]
  - INTERVERTEBRAL DISC DEGENERATION [None]
  - IRRITABLE BOWEL SYNDROME [None]
  - MEMORY IMPAIRMENT [None]
  - OMENTECTOMY [None]
  - OSTEOARTHRITIS [None]
  - POST HERPETIC NEURALGIA [None]
  - RENAL ARTERY STENOSIS [None]
  - RESTLESS LEGS SYNDROME [None]
  - SLEEP APNOEA SYNDROME [None]
  - STENT PLACEMENT [None]
  - THYROID DISORDER [None]
  - TYPE 2 DIABETES MELLITUS [None]
  - URINARY TRACT DISORDER [None]
  - WEIGHT INCREASED [None]
